FAERS Safety Report 7673082-1 (Version None)
Quarter: 2011Q3

REPORT INFORMATION
  Report Type: 
  Country: None (occurrence: None)
  Receive Date: 20110810
  Receipt Date: 20110802
  Transmission Date: 20111222
  Serious: Yes (Hospitalization)
  Sender: FDA-Public Use
  Company Number: US-BIOGENIDEC-2011BI011416

PATIENT
  Age: 42 Year
  Sex: Male

DRUGS (16)
  1. TYSABRI [Suspect]
     Indication: MULTIPLE SCLEROSIS
     Route: 042
     Dates: start: 20081008, end: 20110112
  2. NICODERM CQ [Concomitant]
     Indication: TOBACCO ABUSE
     Route: 023
  3. TRAMADOL HCL [Concomitant]
     Indication: PAIN
     Route: 048
  4. GABAPENTIN [Concomitant]
     Route: 048
  5. BACLOFEN [Concomitant]
     Indication: MUSCLE SPASMS
     Route: 048
  6. OXYGEN [Concomitant]
     Indication: SLEEP APNOEA SYNDROME
  7. ADVIL LIQUI-GELS [Concomitant]
     Indication: PAIN
  8. TIZANIDINE HYDROCHLORIDE [Concomitant]
     Indication: MUSCLE SPASMS
  9. VENTOLIN HFA [Concomitant]
     Indication: WHEEZING
     Route: 045
  10. TRAZODONE HCL [Concomitant]
     Indication: SLEEP DISORDER
     Route: 048
  11. FLUCONAZOLE [Concomitant]
  12. DIAZEPAM [Concomitant]
  13. VENTOLIN HFA [Concomitant]
     Indication: RESPIRATORY TRACT CONGESTION
     Route: 045
  14. VITAMIN D [Concomitant]
     Route: 048
  15. ACETAMINOPHEN [Concomitant]
     Indication: PAIN
     Route: 048
  16. FAMOTIDINE [Concomitant]

REACTIONS (6)
  - MULTIPLE SCLEROSIS RELAPSE [None]
  - PYELONEPHRITIS [None]
  - PSYCHOTIC BEHAVIOUR [None]
  - MOOD SWINGS [None]
  - SEPSIS [None]
  - CYSTITIS [None]
